FAERS Safety Report 23486957 (Version 1)
Quarter: 2024Q1

REPORT INFORMATION
  Report Type: Spontaneous
  Country: CN (occurrence: CN)
  Receive Date: 20240206
  Receipt Date: 20240206
  Transmission Date: 20240410
  Serious: Yes (Other)
  Sender: FDA-Public Use
  Company Number: CN-WOODWARD-2024-CN-000026

PATIENT
  Age: 90 Year
  Sex: Female

DRUGS (1)
  1. RABEPRAZOLE SODIUM [Suspect]
     Active Substance: RABEPRAZOLE SODIUM
     Indication: Gastritis
     Dosage: 1.0 DOSAGE FORM (1 DOSAGE FORM, 1 IN 1 DAY)
     Route: 048
     Dates: start: 20240107, end: 20240109

REACTIONS (3)
  - Mental disorder [Recovered/Resolved]
  - Disorganised speech [Recovered/Resolved]
  - Hallucination [Unknown]

NARRATIVE: CASE EVENT DATE: 20240109
